FAERS Safety Report 24892313 (Version 1)
Quarter: 2025Q1

REPORT INFORMATION
  Report Type: Spontaneous
  Country: US (occurrence: US)
  Receive Date: 20250128
  Receipt Date: 20250128
  Transmission Date: 20250409
  Serious: Yes (Other)
  Sender: AUROBINDO
  Company Number: US-AUROBINDO-AUR-APL-2025-004927

PATIENT

DRUGS (1)
  1. CLONAZEPAM [Suspect]
     Active Substance: CLONAZEPAM
     Indication: Product used for unknown indication
     Route: 065
     Dates: start: 20241206

REACTIONS (5)
  - Deafness [Unknown]
  - Electric shock sensation [Unknown]
  - Feeling abnormal [Unknown]
  - Product dosage form issue [Unknown]
  - Product quality issue [Unknown]
